FAERS Safety Report 4937704-8 (Version None)
Quarter: 2006Q1

REPORT INFORMATION
  Report Type: 
  Country: None (occurrence: None)
  Receive Date: 20060309
  Receipt Date: 20050524
  Transmission Date: 20060701
  Serious: Yes (Hospitalization)
  Sender: FDA-Public Use
  Company Number: US-MERCK-0505USA02908

PATIENT
  Sex: Male

DRUGS (4)
  1. VIOXX [Suspect]
     Indication: ARTHRITIS
     Route: 048
     Dates: start: 20011201, end: 20020401
  2. HYDROCHLOROTHIAZIDE [Concomitant]
     Route: 065
  3. GLUCOTROL [Concomitant]
     Route: 065
  4. VICODIN [Concomitant]
     Route: 065

REACTIONS (11)
  - AMAUROSIS FUGAX [None]
  - ARTERIAL OCCLUSIVE DISEASE [None]
  - CEREBROVASCULAR ACCIDENT [None]
  - CUTIS LAXA [None]
  - DERMATITIS [None]
  - FALL [None]
  - ISCHAEMIC STROKE [None]
  - LIMB INJURY [None]
  - OBSTRUCTIVE UROPATHY [None]
  - URINARY TRACT INFECTION [None]
  - VISUAL DISTURBANCE [None]
